FAERS Safety Report 15121045 (Version 1)
Quarter: 2018Q3

REPORT INFORMATION
  Report Type: Spontaneous
  Country: US (occurrence: US)
  Receive Date: 20180709
  Receipt Date: 20180709
  Transmission Date: 20181010
  Serious: Yes (Other)
  Sender: FDA-Public Use
  Company Number: US-SA-2018SA179345

PATIENT
  Age: 45 Year
  Sex: Female
  Weight: 65 kg

DRUGS (11)
  1. TAXOTERE [Suspect]
     Active Substance: DOCETAXEL
     Indication: BREAST CANCER FEMALE
     Dosage: 130 MG, Q3W
     Route: 042
     Dates: start: 20080110, end: 20080110
  2. ALOXI [Concomitant]
     Active Substance: PALONOSETRON HYDROCHLORIDE
  3. VITAMIN E [TOCOPHEROL] [Concomitant]
  4. DOXORUBICIN [Concomitant]
     Active Substance: DOXORUBICIN
  5. PHENERGAN [PROMETHAZINE HYDROCHLORIDE] [Concomitant]
  6. NEULASTA [Concomitant]
     Active Substance: PEGFILGRASTIM
  7. NEOSAR [Concomitant]
     Active Substance: CYCLOPHOSPHAMIDE
  8. DECADRON [Concomitant]
     Active Substance: DEXAMETHASONE
  9. TAXOTERE [Suspect]
     Active Substance: DOCETAXEL
     Dosage: 130 MG, Q3W
     Route: 042
     Dates: start: 20080424, end: 20080424
  10. NEXIUM [ESOMEPRAZOLE MAGNESIUM] [Concomitant]
  11. OMEPRAZOLE. [Concomitant]
     Active Substance: OMEPRAZOLE

REACTIONS (2)
  - Alopecia [Recovering/Resolving]
  - Psychological trauma [Unknown]
